FAERS Safety Report 8504107-9 (Version None)
Quarter: 2012Q3

REPORT INFORMATION
  Report Type: 
  Country: None (occurrence: None)
  Receive Date: 20120711
  Receipt Date: 20120702
  Transmission Date: 20120928
  Serious: Yes (Other)
  Sender: FDA-Public Use
  Company Number: US-CELGENEUS-163-21880-12070250

PATIENT
  Sex: Female

DRUGS (2)
  1. REVLIMID [Suspect]
     Indication: MULTIPLE MYELOMA
     Dosage: 15 MILLIGRAM
     Route: 048
     Dates: start: 20110627
  2. COUMADIN [Concomitant]
     Route: 065

REACTIONS (3)
  - ARTHROPATHY [None]
  - DIARRHOEA [None]
  - INTERNATIONAL NORMALISED RATIO ABNORMAL [None]
